FAERS Safety Report 6910483-0 (Version None)
Quarter: 2010Q3

REPORT INFORMATION
  Report Type: 
  Country: None (occurrence: None)
  Receive Date: 20100806
  Receipt Date: 20100803
  Transmission Date: 20110219
  Serious: Yes (Hospitalization)
  Sender: FDA-Public Use
  Company Number: US-BRISTOL-MYERS SQUIBB COMPANY-15223985

PATIENT
  Age: 68 Year
  Sex: Male
  Weight: 79 kg

DRUGS (2)
  1. GLUCOPHAGE [Suspect]
  2. AMARYL [Concomitant]
     Route: 048

REACTIONS (1)
  - NEPHRECTOMY [None]
